FAERS Safety Report 9316256 (Version 2)
Quarter: 2013Q2

REPORT INFORMATION
  Report Type: Spontaneous
  Country: US (occurrence: None)
  Receive Date: 20130522
  Receipt Date: 20130606
  Transmission Date: 20140414
  Serious: Yes (Other)
  Sender: FDA-Public Use
  Company Number: ADR-2013-00858

PATIENT
  Age: 61 Year
  Sex: Male

DRUGS (1)
  1. GABALON [Suspect]

REACTIONS (1)
  - Myelitis [None]
